FAERS Safety Report 7053659-7 (Version None)
Quarter: 2010Q4

REPORT INFORMATION
  Report Type: 
  Country: None (occurrence: None)
  Receive Date: 20101020
  Receipt Date: 20101011
  Transmission Date: 20110411
  Serious: Yes (Death)
  Sender: FDA-Public Use
  Company Number: AU-ROCHE-734939

PATIENT
  Sex: Male
  Weight: 79 kg

DRUGS (6)
  1. XELODA [Suspect]
     Route: 048
     Dates: start: 20100910, end: 20100916
  2. ATENOLOL [Concomitant]
  3. ATORVASTATIN [Concomitant]
  4. METFORMIN HYDROCHLORIDE [Concomitant]
  5. OMEPRAZOLE [Concomitant]
  6. VENLAFAXINE HYDROCHLORIDE [Concomitant]

REACTIONS (9)
  - GENITAL CANDIDIASIS [None]
  - MUCOSAL INFLAMMATION [None]
  - ORAL CANDIDIASIS [None]
  - PANCYTOPENIA [None]
  - PNEUMONIA [None]
  - SCROTAL ULCER [None]
  - SEPSIS [None]
  - STOMATITIS [None]
  - THROMBOCYTOPENIA [None]
